FAERS Safety Report 13372286 (Version 1)
Quarter: 2017Q1

REPORT INFORMATION
  Report Type: Spontaneous
  Country: US (occurrence: US)
  Receive Date: 20170324
  Receipt Date: 20170324
  Transmission Date: 20170429
  Serious: Yes (Hospitalization)
  Sender: FDA-Public Use
  Company Number: None

PATIENT
  Age: 56 Year
  Sex: Female
  Weight: 53.1 kg

DRUGS (1)
  1. SOFOSBUVIR-LEDIPASVIR [Suspect]
     Active Substance: LEDIPASVIR\SOFOSBUVIR
     Indication: HEPATITIS C

REACTIONS (5)
  - Lung infiltration [None]
  - Hyperglycaemia [None]
  - Pulmonary tuberculosis [None]
  - Weight decreased [None]
  - Infection reactivation [None]

NARRATIVE: CASE EVENT DATE: 20160707
